FAERS Safety Report 14331567 (Version 2)
Quarter: 2018Q1

REPORT INFORMATION
  Report Type: Spontaneous
  Country: US (occurrence: US)
  Receive Date: 20171228
  Receipt Date: 20180103
  Transmission Date: 20180509
  Serious: No
  Sender: FDA-Public Use
  Company Number: US-BIOGEN-2017BI00500090

PATIENT
  Sex: Female

DRUGS (1)
  1. PLEGRIDY [Suspect]
     Active Substance: PEGINTERFERON BETA-1A
     Indication: MULTIPLE SCLEROSIS
     Route: 065
     Dates: start: 20150804

REACTIONS (7)
  - Visual acuity reduced [Unknown]
  - Headache [Unknown]
  - Dysarthria [Unknown]
  - Fall [Recovered/Resolved]
  - Stress [Unknown]
  - Mental impairment [Unknown]
  - Gait disturbance [Unknown]
